FAERS Safety Report 4523324-6 (Version None)
Quarter: 2004Q4

REPORT INFORMATION
  Report Type: 
  Country: None (occurrence: None)
  Receive Date: 20041209
  Receipt Date: 20041203
  Transmission Date: 20050328
  Serious: Yes (Hospitalization)
  Sender: FDA-Public Use
  Company Number: 2004-BP-13091RO

PATIENT
  Age: 29 Year
  Sex: Female
  Weight: 92.8 kg

DRUGS (2)
  1. DEXAMETHASONE [Suspect]
     Indication: HYPEREMESIS GRAVIDARUM
     Dosage: 10 MG Q6H (TAPER AT END) (4 MG), PO
     Route: 048
     Dates: start: 20040818, end: 20041002
  2. ZOLOFT [Suspect]

REACTIONS (7)
  - DEPRESSION [None]
  - DRUG EXPOSURE DURING PREGNANCY [None]
  - INTRA-UTERINE DEATH [None]
  - MYALGIA [None]
  - MYOPATHY STEROID [None]
  - PNEUMOCYSTIS CARINII PNEUMONIA [None]
  - THROMBOSIS [None]
